FAERS Safety Report 10687309 (Version 1)
Quarter: 2015Q1

REPORT INFORMATION
  Report Type: Report from Study
  Country: US (occurrence: US)
  Receive Date: 20150102
  Receipt Date: 20150102
  Transmission Date: 20150720
  Serious: Yes (Other)
  Sender: FDA-Public Use
  Company Number: US-BAYER-2014-190748

PATIENT
  Age: 69 Year
  Sex: Female

DRUGS (1)
  1. NEXAVAR [Suspect]
     Active Substance: SORAFENIB
     Indication: HEPATIC CIRRHOSIS
     Dosage: 400 MG, BID
     Route: 048
     Dates: start: 20140514

REACTIONS (3)
  - Neoplasm malignant [Not Recovered/Not Resolved]
  - Product use issue [None]
  - Therapeutic product ineffective for unapproved indication [Not Recovered/Not Resolved]
